FAERS Safety Report 7044971-6 (Version None)
Quarter: 2010Q4

REPORT INFORMATION
  Report Type: 
  Country: None (occurrence: None)
  Receive Date: 20101014
  Receipt Date: 20101008
  Transmission Date: 20110411
  Serious: Yes (Hospitalization, Other)
  Sender: FDA-Public Use
  Company Number: FI-BRISTOL-MYERS SQUIBB COMPANY-14939052

PATIENT
  Age: 59 Year
  Sex: Male

DRUGS (5)
  1. ERBITUX [Suspect]
     Indication: COLORECTAL CANCER
     Dosage: FORMLN: 5 MG/ML
     Dates: start: 20100111
  2. IRINOTECAN HCL [Concomitant]
     Indication: COLORECTAL CANCER METASTATIC
     Dates: start: 20100111
  3. FLUOROURACIL [Concomitant]
     Indication: COLORECTAL CANCER METASTATIC
     Dates: start: 20100111
  4. FOLINIC ACID [Concomitant]
     Indication: COLORECTAL CANCER METASTATIC
     Dates: start: 20100111
  5. ATACAND [Concomitant]
     Indication: HYPERTONIA

REACTIONS (1)
  - ANAPHYLACTIC SHOCK [None]
